FAERS Safety Report 5872885-3 (Version None)
Quarter: 2008Q3

REPORT INFORMATION
  Report Type: 
  Country: None (occurrence: None)
  Receive Date: 20080905
  Receipt Date: 20080826
  Transmission Date: 20090109
  Serious: Yes (Hospitalization, Other)
  Sender: FDA-Public Use
  Company Number: US-PFIZER INC-2008055021

PATIENT
  Sex: Female

DRUGS (23)
  1. LYRICA [Suspect]
     Indication: DIABETIC NEUROPATHY
     Route: 048
  2. ALLOPURINOL [Concomitant]
  3. ATENOLOL [Concomitant]
  4. ATORVASTATIN CALCIUM [Concomitant]
  5. VITAMIN B12 FOR INJECTION [Concomitant]
  6. FOLIC ACID [Concomitant]
  7. INDOMETHACIN [Concomitant]
  8. HUMALOG [Concomitant]
  9. LISINOPRIL [Concomitant]
  10. LANTUS [Concomitant]
  11. KEPPRA [Concomitant]
  12. PRILOSEC [Concomitant]
  13. DEMADEX [Concomitant]
  14. WARFARIN SODIUM [Concomitant]
  15. VITAMIN TAB [Concomitant]
  16. MINERAL SUPPLEMENTS [Concomitant]
  17. TRAZODONE HCL [Concomitant]
  18. LIPITOR [Concomitant]
  19. ASCORBIC ACID [Concomitant]
  20. CALCIUM [Concomitant]
  21. ACETYLSALICYLIC ACID SRT [Concomitant]
  22. IRON [Concomitant]
  23. VITAMIN D [Concomitant]

REACTIONS (9)
  - ASTHENIA [None]
  - BLOOD GLUCOSE DECREASED [None]
  - CARDIAC FAILURE CONGESTIVE [None]
  - CONVULSION [None]
  - NAUSEA [None]
  - RENAL IMPAIRMENT [None]
  - SCIATICA [None]
  - URINARY INCONTINENCE [None]
  - VOMITING [None]
